FAERS Safety Report 6493733-7 (Version None)
Quarter: 2009Q4

REPORT INFORMATION
  Report Type: 
  Country: None (occurrence: None)
  Receive Date: 20091209
  Receipt Date: 20091126
  Transmission Date: 20100525
  Serious: Yes (Hospitalization)
  Sender: FDA-Public Use
  Company Number: 230273J09BRA

PATIENT
  Age: 61 Year
  Sex: Female

DRUGS (6)
  1. REBIF [Suspect]
     Indication: RELAPSING-REMITTING MULTIPLE SCLEROSIS
     Dosage: 44 MCG, 3 IN 1 WEEKS ; 44 MCG, 3 IN 1 WEEKS ; 22 MCG, 3 IN 1 WEEKS
     Dates: start: 20021025, end: 20031025
  2. REBIF [Suspect]
     Indication: RELAPSING-REMITTING MULTIPLE SCLEROSIS
     Dosage: 44 MCG, 3 IN 1 WEEKS ; 44 MCG, 3 IN 1 WEEKS ; 22 MCG, 3 IN 1 WEEKS
     Dates: start: 20031025, end: 20090313
  3. REBIF [Suspect]
     Indication: RELAPSING-REMITTING MULTIPLE SCLEROSIS
     Dosage: 44 MCG, 3 IN 1 WEEKS ; 44 MCG, 3 IN 1 WEEKS ; 22 MCG, 3 IN 1 WEEKS
     Dates: start: 20090330
  4. OTHER (ALL OTHER THERAPEUTIC PRODUCTS) [Concomitant]
  5. RETEMIC (OXYBUTYNIN) (OXYBUTYNIN) [Concomitant]
  6. HIDANTAL (PHENYTOIN /00017401/) [Concomitant]

REACTIONS (4)
  - BLOOD GLUCOSE INCREASED [None]
  - BLOOD PRESSURE INCREASED [None]
  - NO THERAPEUTIC RESPONSE [None]
  - PYREXIA [None]
